FAERS Safety Report 6911279-6 (Version None)
Quarter: 2010Q3

REPORT INFORMATION
  Report Type: 
  Country: None (occurrence: None)
  Receive Date: 20100806
  Receipt Date: 20100730
  Transmission Date: 20110219
  Serious: Yes (Hospitalization)
  Sender: FDA-Public Use
  Company Number: PHHO2010DE10621

PATIENT
  Sex: Male
  Weight: 100 kg

DRUGS (6)
  1. STI571/CGP57148B T35717+TAB [Suspect]
     Indication: COLORECTAL CANCER
     Dosage: 300 MG/ DAY
     Route: 048
     Dates: start: 20090923, end: 20100707
  2. BEVACIZUMAB [Concomitant]
     Dosage: 7.5 MG/KG
     Route: 042
     Dates: start: 20090923, end: 20100707
  3. OXALIPLATIN [Concomitant]
     Dosage: 100 MG/M2
     Route: 042
     Dates: start: 20090923, end: 20100707
  4. CAPECITABINE [Concomitant]
     Dosage: 1700 MG/M2/DAY
     Route: 048
     Dates: start: 20090923, end: 20100707
  5. LOPEDIUM [Concomitant]
  6. OPIUM ^DAK^ [Concomitant]

REACTIONS (1)
  - ANAL ABSCESS [None]
